FAERS Safety Report 6527282-4 (Version None)
Quarter: 2010Q1

REPORT INFORMATION
  Report Type: 
  Country: None (occurrence: None)
  Receive Date: 20100105
  Receipt Date: 20081210
  Transmission Date: 20100710
  Serious: No
  Sender: FDA-Public Use
  Company Number: US-TYCO HEALTHCARE/MALLINCKRODT-T200802088

PATIENT
  Age: 54 Year
  Sex: Male
  Weight: 77.098 kg

DRUGS (2)
  1. OPTIMARK [Suspect]
     Indication: NUCLEAR MAGNETIC RESONANCE IMAGING
     Dosage: 16 ML, SINGLE
     Route: 042
     Dates: start: 20081201, end: 20081201
  2. OPTIMARK [Suspect]
     Dosage: 16 ML, SINGLE
     Route: 042
     Dates: start: 20081209, end: 20081209

REACTIONS (1)
  - SKIN DISCOLOURATION [None]
